FAERS Safety Report 15576356 (Version 2)
Quarter: 2018Q4

REPORT INFORMATION
  Report Type: Spontaneous
  Country: JP (occurrence: JP)
  Receive Date: 20181101
  Receipt Date: 20181116
  Transmission Date: 20190205
  Serious: Yes (Hospitalization, Other)
  Sender: FDA-Public Use
  Company Number: PHJP2018JP015232

PATIENT
  Age: 49 Year
  Sex: Male
  Weight: 84.8 kg

DRUGS (19)
  1. CLOZARIL [Suspect]
     Active Substance: CLOZAPINE
     Dosage: 75 MG, UNK
     Route: 048
     Dates: start: 20180724, end: 20180725
  2. OLANZAPINE. [Suspect]
     Active Substance: OLANZAPINE
     Indication: SCHIZOPHRENIA
     Dosage: 20 MG, UNK
     Route: 048
     Dates: end: 20180724
  3. RISPERIDONE. [Concomitant]
     Active Substance: RISPERIDONE
     Dosage: 6 MG, UNK
     Route: 048
     Dates: start: 20180725, end: 20180731
  4. CLOZARIL [Suspect]
     Active Substance: CLOZAPINE
     Dosage: 25 MG, UNK
     Route: 048
     Dates: start: 20180720, end: 20180721
  5. CLOZARIL [Suspect]
     Active Substance: CLOZAPINE
     Dosage: 125 MG, UNK
     Route: 048
     Dates: start: 20180728, end: 20180729
  6. OLANZAPINE. [Suspect]
     Active Substance: OLANZAPINE
     Dosage: 5 MG, QD
     Route: 048
     Dates: start: 20180801, end: 20180808
  7. ZOTEPINE [Concomitant]
     Active Substance: ZOTEPINE
     Indication: SCHIZOPHRENIA
     Dosage: 300 MG, UNK
     Route: 048
     Dates: end: 20180724
  8. LORAZEPAM. [Concomitant]
     Active Substance: LORAZEPAM
     Indication: PRODUCT USED FOR UNKNOWN INDICATION
     Dosage: 1 MG, TID
     Route: 048
  9. CLOZARIL [Suspect]
     Active Substance: CLOZAPINE
     Indication: SCHIZOPHRENIA
     Dosage: UNK
     Route: 048
     Dates: start: 20180719
  10. CLOZARIL [Suspect]
     Active Substance: CLOZAPINE
     Dosage: 37.5 MG, BID
     Route: 048
     Dates: start: 20180807, end: 20180809
  11. RISPERIDONE. [Concomitant]
     Active Substance: RISPERIDONE
     Indication: SCHIZOPHRENIA
     Dosage: 9 MG, UNK
     Route: 048
     Dates: start: 201711, end: 20180724
  12. ZOTEPINE [Concomitant]
     Active Substance: ZOTEPINE
     Dosage: 150 MG, UNK
     Route: 048
     Dates: start: 20180725, end: 20180801
  13. CLOZARIL [Suspect]
     Active Substance: CLOZAPINE
     Dosage: 75 MG, ONLY IN THE MORNING
     Route: 048
     Dates: start: 20180806, end: 20180806
  14. RISPERIDONE. [Concomitant]
     Active Substance: RISPERIDONE
     Dosage: 1 MG, TID
     Route: 048
     Dates: start: 20180801, end: 20180808
  15. CLOZARIL [Suspect]
     Active Substance: CLOZAPINE
     Dosage: 50 MG, UNK
     Route: 048
     Dates: start: 20180722, end: 20180723
  16. CLOZARIL [Suspect]
     Active Substance: CLOZAPINE
     Dosage: 100 MG, UNK
     Route: 048
     Dates: start: 20180726, end: 20180727
  17. CLOZARIL [Suspect]
     Active Substance: CLOZAPINE
     Dosage: 150 MG, UNK
     Route: 048
     Dates: start: 20180730, end: 20180805
  18. OLANZAPINE. [Suspect]
     Active Substance: OLANZAPINE
     Dosage: 10 MG, UNK
     Route: 048
     Dates: start: 20180725, end: 20180731
  19. OLANZAPINE. [Suspect]
     Active Substance: OLANZAPINE
     Dosage: 20 MG, UNK
     Route: 048
     Dates: start: 20180809

REACTIONS (18)
  - Nausea [Unknown]
  - Computerised tomogram thorax abnormal [Recovered/Resolved]
  - Intestinal dilatation [Recovered/Resolved]
  - Constipation [Unknown]
  - Salivary hypersecretion [Unknown]
  - Gastrointestinal wall thickening [Recovered/Resolved]
  - Constipation [Unknown]
  - Atypical pneumonia [Unknown]
  - Chest discomfort [Unknown]
  - Blood pressure increased [Unknown]
  - Enteritis [Recovered/Resolved]
  - Ileus [Unknown]
  - Pyrexia [Recovered/Resolved]
  - Dyspnoea [Unknown]
  - Dizziness [Unknown]
  - Vomiting [Unknown]
  - Cold sweat [Unknown]
  - Dyspepsia [Unknown]

NARRATIVE: CASE EVENT DATE: 20180724
